FAERS Safety Report 20098274 (Version 2)
Quarter: 2021Q4

REPORT INFORMATION
  Report Type: Spontaneous
  Country: GB (occurrence: None)
  Receive Date: 20211122
  Receipt Date: 20211129
  Transmission Date: 20220303
  Serious: Yes (Life-Threatening, Other)
  Sender: FDA-Public Use
  Company Number: 2021A820712

PATIENT
  Sex: Male

DRUGS (1)
  1. QUETIAPINE [Suspect]
     Active Substance: QUETIAPINE
     Indication: Product used for unknown indication
     Route: 065

REACTIONS (11)
  - Diabetic ketoacidosis [Unknown]
  - Mental disorder [Unknown]
  - Dementia [Not Recovered/Not Resolved]
  - Tremor [Not Recovered/Not Resolved]
  - Type 2 diabetes mellitus [Not Recovered/Not Resolved]
  - Dependence [Not Recovered/Not Resolved]
  - Pancreatitis [Unknown]
  - Blood pressure fluctuation [Not Recovered/Not Resolved]
  - Hyperglycaemia [Unknown]
  - Blood cholesterol increased [Not Recovered/Not Resolved]
  - General physical health deterioration [Unknown]
